FAERS Safety Report 21731615 (Version 3)
Quarter: 2023Q1

REPORT INFORMATION
  Report Type: Spontaneous
  Country: US (occurrence: US)
  Receive Date: 20221215
  Receipt Date: 20230112
  Transmission Date: 20230417
  Serious: No
  Sender: FDA-Public Use
  Company Number: US-HETERO-HET2022US03092

PATIENT
  Age: 83 Year
  Sex: Female

DRUGS (1)
  1. ARIPIPRAZOLE [Suspect]
     Active Substance: ARIPIPRAZOLE
     Indication: Product used for unknown indication
     Dosage: 2 MG, ONCE TAKEN AT NIGHT, BOTTLE OF 30 TABLETS
     Route: 065

REACTIONS (1)
  - Drug ineffective [Unknown]
